FAERS Safety Report 16386267 (Version 2)
Quarter: 2019Q2

REPORT INFORMATION
  Report Type: Report from Study
  Country: CN (occurrence: CN)
  Receive Date: 20190603
  Receipt Date: 20190610
  Transmission Date: 20190711
  Serious: Yes (Hospitalization)
  Sender: FDA-Public Use
  Company Number: CN-ELI_LILLY_AND_COMPANY-CN201905012667

PATIENT
  Age: 47 Year
  Sex: Female
  Weight: 62 kg

DRUGS (2)
  1. INSULIN, LISPRO [Suspect]
     Active Substance: INSULIN LISPRO
     Indication: TYPE 2 DIABETES MELLITUS
     Dosage: 12 U, BID (MORNING AND NIGHT)
     Route: 058
     Dates: start: 2016
  2. INSULIN, LISPRO [Suspect]
     Active Substance: INSULIN LISPRO
     Dosage: 10 U, DAILY (AFTERNOON)
     Route: 058
     Dates: start: 2016

REACTIONS (3)
  - Blood glucose abnormal [Unknown]
  - Hypoglycaemia [Recovered/Resolved]
  - Syncope [Recovered/Resolved]
